FAERS Safety Report 4482321-X (Version None)
Quarter: 2004Q4

REPORT INFORMATION
  Report Type: 
  Country: None (occurrence: None)
  Receive Date: 20041022
  Receipt Date: 20041015
  Transmission Date: 20050328
  Serious: Yes (Other)
  Sender: FDA-Public Use
  Company Number: DE-MERCK-0410DEU00497

PATIENT
  Sex: Female

DRUGS (2)
  1. VIOXX [Suspect]
     Route: 048
     Dates: start: 20021001, end: 20020101
  2. [THERAPY UNSPECIFIED] [Concomitant]
     Route: 065
     Dates: start: 20021001

REACTIONS (7)
  - ANOREXIA [None]
  - CARDIAC DISORDER [None]
  - COUGH [None]
  - CYSTITIS NONINFECTIVE [None]
  - DIARRHOEA [None]
  - PRURITUS [None]
  - VOMITING [None]
